FAERS Safety Report 5113466-9 (Version None)
Quarter: 2006Q3

REPORT INFORMATION
  Report Type: 
  Country: None (occurrence: None)
  Receive Date: 20060920
  Receipt Date: 20060908
  Transmission Date: 20061208
  Serious: Yes (Life-Threatening)
  Sender: FDA-Public Use
  Company Number: HQWYE627804APR06

PATIENT
  Age: 58 Year
  Sex: Male

DRUGS (14)
  1. MYLOTARG [Suspect]
     Indication: ACUTE MYELOID LEUKAEMIA
     Dosage: 9 MG/M^2 1X PER 1 DAY
     Route: 041
     Dates: start: 20060127, end: 20060127
  2. ITRACONAZOLE [Concomitant]
  3. CIPROXAN (CIPROFLOXACIN HYDROCHLORIDE) [Concomitant]
  4. ALLOPURINOL [Concomitant]
  5. DIOVAN [Concomitant]
  6. LANSOPRAZOLE [Concomitant]
  7. SELBEX (TEPRENONE) [Concomitant]
  8. MAGNESIUM OXIDE [Concomitant]
  9. DEXTROMETHORPHAN HYDROBROMIDE [Concomitant]
  10. ASTOMIN (DIMEMORFAN PHOSPHATE) [Concomitant]
  11. SULFAMETHOXAZOLE + TRIMETHOPRIM [Concomitant]
  12. HYDREA [Concomitant]
  13. ROCEPHIN [Concomitant]
  14. BROCIN (WILD CHERRY BARK) [Concomitant]

REACTIONS (9)
  - ACTIVATED PARTIAL THROMBOPLASTIN TIME PROLONGED [None]
  - BLOOD LACTATE DEHYDROGENASE INCREASED [None]
  - CARDIAC FAILURE CONGESTIVE [None]
  - CONDITION AGGRAVATED [None]
  - HAEMOGLOBIN DECREASED [None]
  - INTERSTITIAL LUNG DISEASE [None]
  - MALIGNANT NEOPLASM PROGRESSION [None]
  - PERFORMANCE STATUS DECREASED [None]
  - RED BLOOD CELL COUNT DECREASED [None]
